FAERS Safety Report 9363269 (Version 1)
Quarter: 2013Q2

REPORT INFORMATION
  Report Type: Spontaneous
  Country: US (occurrence: US)
  Receive Date: 20130624
  Receipt Date: 20130624
  Transmission Date: 20140414
  Serious: Yes (Other)
  Sender: FDA-Public Use
  Company Number: US-PFIZER INC-2013186014

PATIENT
  Sex: Female

DRUGS (1)
  1. ETHINYL ESTRADIOL/NORGESTREL [Suspect]
     Indication: ORAL CONTRACEPTION
     Dosage: 0.3MG/0.03MG
     Route: 048
     Dates: start: 201108

REACTIONS (3)
  - Product quality issue [Unknown]
  - Drug ineffective [Unknown]
  - Unintended pregnancy [Unknown]
